FAERS Safety Report 5982141-0 (Version None)
Quarter: 2008Q4

REPORT INFORMATION
  Report Type: 
  Country: None (occurrence: None)
  Receive Date: 20081203
  Receipt Date: 20081119
  Transmission Date: 20090506
  Serious: Yes (Hospitalization)
  Sender: FDA-Public Use
  Company Number: TRP_05982_2008

PATIENT
  Sex: Male

DRUGS (2)
  1. RIBASPHERE [Suspect]
     Indication: HEPATITIS C
     Dosage: (1200 MG)
     Dates: start: 20080528, end: 20081111
  2. PEGASYS [Suspect]
     Indication: HEPATITIS C
     Dosage: (180 DF 1X/ WEEK INTRAMUSCULAR)
     Route: 030
     Dates: start: 20080528, end: 20081111

REACTIONS (10)
  - BLOOD CULTURE POSITIVE [None]
  - CELLULITIS [None]
  - CELLULITIS ORBITAL [None]
  - DIZZINESS [None]
  - HAEMOGLOBIN DECREASED [None]
  - NASAL DISORDER [None]
  - NAUSEA [None]
  - RETCHING [None]
  - STAPHYLOCOCCAL INFECTION [None]
  - WHITE BLOOD CELL COUNT INCREASED [None]
